FAERS Safety Report 5027875-X (Version None)
Quarter: 2006Q2

REPORT INFORMATION
  Report Type: 
  Country: None (occurrence: None)
  Receive Date: 20060616
  Receipt Date: 20060606
  Transmission Date: 20061013
  Serious: Yes (Other)
  Sender: FDA-Public Use
  Company Number: US-ROCHE-450969

PATIENT
  Age: 59 Year
  Sex: Female

DRUGS (3)
  1. PEGASYS [Suspect]
     Dosage: ROUTE REPORTED AS INJECTABLE. MONOTHERAPY.
     Route: 050
     Dates: start: 20060110
  2. PEGASYS [Suspect]
     Dosage: ROUTE REPORTED AS INJECTABLE.
     Route: 050
     Dates: start: 20040615, end: 20050515
  3. COPEGUS [Suspect]
     Dosage: THE PATIENT WAS NOT SURE, WHETHER SHE TOOK 800 MCG OR 1000 MCG DAILY.
     Route: 048
     Dates: start: 20040615, end: 20050515

REACTIONS (7)
  - DIARRHOEA [None]
  - DISEASE RECURRENCE [None]
  - PANCREATIC CYST [None]
  - RENAL CYST [None]
  - URETHRAL CYST [None]
  - URINARY TRACT INFECTION [None]
  - WHITE BLOOD CELL COUNT DECREASED [None]
